FAERS Safety Report 24568768 (Version 1)
Quarter: 2024Q4

REPORT INFORMATION
  Report Type: Spontaneous
  Country: US (occurrence: None)
  Receive Date: 20241030
  Receipt Date: 20241030
  Transmission Date: 20250114
  Serious: Yes (Hospitalization, Other)
  Sender: Public
  Company Number: None

PATIENT
  Age: 0 Year
  Sex: Female
  Weight: 2.02 kg

DRUGS (10)
  1. ESCITALOPRAM [Suspect]
     Active Substance: ESCITALOPRAM OXALATE
  2. BUPROPION [Suspect]
     Active Substance: BUPROPION
  3. Maternal medication: Metoclopramide [Concomitant]
  4. Maternal medication: Promethazine [Concomitant]
  5. Maternal medication: Ondansetron [Concomitant]
  6. Maternal medication: Scopoiamine [Concomitant]
  7. Maternal medication: Dicycioverine [Concomitant]
  8. Maternal medication: Ticagrelor [Concomitant]
  9. Maternal medication: Montelukast [Concomitant]
  10. Maternal medication: Levocetirizine [Concomitant]

REACTIONS (6)
  - Maternal exposure during pregnancy [None]
  - Premature baby [None]
  - Bradycardia [None]
  - Oxygen saturation decreased [None]
  - Atrial septal defect [None]
  - Hyperbilirubinaemia [None]

NARRATIVE: CASE EVENT DATE: 20210802
